FAERS Safety Report 12838059 (Version 2)
Quarter: 2016Q4

REPORT INFORMATION
  Report Type: Spontaneous
  Country: FR (occurrence: FR)
  Receive Date: 20161012
  Receipt Date: 20161021
  Transmission Date: 20170207
  Serious: Yes (Death)
  Sender: FDA-Public Use
  Company Number: FR-ACCORD-044678

PATIENT
  Age: 66 Year
  Sex: Male

DRUGS (3)
  1. FLUOROURACIL. [Suspect]
     Active Substance: FLUOROURACIL
     Indication: NASAL SINUS CANCER
     Route: 042
     Dates: start: 20160810, end: 20160814
  2. DOCETAXEL ACCORD [Suspect]
     Active Substance: DOCETAXEL
     Indication: NASAL SINUS CANCER
     Dosage: 75 MG/M2, PER COURSE
     Route: 042
     Dates: start: 20160811, end: 20160811
  3. CISPLATIN. [Suspect]
     Active Substance: CISPLATIN
     Indication: NASAL SINUS CANCER
     Route: 042
     Dates: start: 20160811

REACTIONS (5)
  - Bone marrow failure [Fatal]
  - Gastroenteritis [Fatal]
  - Septic shock [Fatal]
  - Colitis [Fatal]
  - Oral candidiasis [Fatal]

NARRATIVE: CASE EVENT DATE: 20160819
